FAERS Safety Report 6226868-4 (Version None)
Quarter: 2009Q2

REPORT INFORMATION
  Report Type: 
  Country: None (occurrence: None)
  Receive Date: 20090612
  Receipt Date: 20090519
  Transmission Date: 20091009
  Serious: No
  Sender: FDA-Public Use
  Company Number: US-ABBOTT-09P-163-0575107-00

PATIENT
  Sex: Male
  Weight: 70.37 kg

DRUGS (2)
  1. HUMIRA [Suspect]
     Indication: COLITIS ULCERATIVE
     Dosage: LOADING DOSE OF 160 MG AND 4 DAYS LATER 80 MG
     Route: 058
     Dates: start: 20080501, end: 20080801
  2. PREDNISONE [Concomitant]
     Indication: COLITIS ULCERATIVE
     Dosage: UNKNOWN
     Route: 048

REACTIONS (2)
  - DRUG INEFFECTIVE [None]
  - RASH ERYTHEMATOUS [None]
